FAERS Safety Report 9546551 (Version 1)
Quarter: 2013Q3

REPORT INFORMATION
  Report Type: Spontaneous
  Country: US (occurrence: US)
  Receive Date: 20130923
  Receipt Date: 20130923
  Transmission Date: 20140515
  Serious: No
  Sender: FDA-Public Use
  Company Number: US-009507513-1309USA007729

PATIENT
  Sex: Female

DRUGS (1)
  1. IMPLANON [Suspect]
     Indication: CONTRACEPTION
     Dosage: 1 DF, 3 YEAR IMPLANT
     Route: 059
     Dates: start: 2012

REACTIONS (8)
  - Dizziness [Unknown]
  - Dizziness [Unknown]
  - Menorrhagia [Unknown]
  - Amenorrhoea [Unknown]
  - Menorrhagia [Unknown]
  - Back pain [Unknown]
  - Pain in extremity [Unknown]
  - Pruritus [Unknown]
